FAERS Safety Report 6755880-1 (Version None)
Quarter: 2010Q2

REPORT INFORMATION
  Report Type: 
  Country: None (occurrence: None)
  Receive Date: 20100604
  Receipt Date: 20100527
  Transmission Date: 20101027
  Serious: Yes (Death, Hospitalization, Disabling)
  Sender: FDA-Public Use
  Company Number: JP-BRISTOL-MYERS SQUIBB COMPANY-14901631

PATIENT
  Age: 35 Year
  Sex: Male
  Weight: 66 kg

DRUGS (20)
  1. SPRYCEL [Suspect]
     Indication: CHRONIC MYELOID LEUKAEMIA
     Dosage: 12JUN09-29JUN09:70MG. 29JUN09-05OCT09,90MG. 21OCT09-29NOV09,60MG
     Route: 048
     Dates: start: 20090612, end: 20091129
  2. CYTARABINE [Concomitant]
     Indication: CHRONIC MYELOID LEUKAEMIA
     Dosage: CYTARABINE OOFOSPHATE HYDRATE CAP
     Route: 048
     Dates: start: 20090305, end: 20091129
  3. HYDROXYCARBAMIDE [Concomitant]
     Indication: CHRONIC MYELOID LEUKAEMIA
     Dosage: CAP
     Route: 048
     Dates: start: 20090319, end: 20091129
  4. RANITIDINE HCL TABS [Concomitant]
     Indication: PROPHYLAXIS
     Route: 048
     Dates: end: 20091104
  5. POTASSIUM CHLORIDE [Concomitant]
     Indication: PROPHYLAXIS
     Dosage: TABS
     Route: 048
     Dates: end: 20091129
  6. DOMIPHEN BROMIDE [Concomitant]
     Indication: PROPHYLAXIS
     Dosage: LOZENGE
     Route: 048
     Dates: end: 20091129
  7. GARENOXACIN ORAL TABS [Concomitant]
     Indication: PROPHYLAXIS
     Dosage: GARENOXACIN MESILATE HYDRATE
     Route: 048
     Dates: end: 20091129
  8. LANSOPRAZOLE [Concomitant]
     Route: 048
     Dates: start: 20090704, end: 20091129
  9. DEFERASIROX [Concomitant]
     Dosage: TAB
     Route: 048
     Dates: start: 20090826, end: 20091102
  10. LOPERAMIDE HCL [Concomitant]
     Indication: DIARRHOEA
     Route: 048
     Dates: start: 20090702, end: 20091129
  11. BERBERINE [Concomitant]
     Indication: DIARRHOEA
     Dosage: BERBERINE CHLORIDE HYDRATE TAB/GENNOSHOKO EXTRACT 6 D.F= 6 TABS
     Route: 048
     Dates: start: 20090702, end: 20091129
  12. VORICONAZOLE [Concomitant]
     Dosage: TABLETS
     Route: 048
     Dates: start: 20090914, end: 20091129
  13. ANTIBIOTICS-RESISTANT LACTIC ACID BACTERIA [Concomitant]
     Indication: DIARRHOEA
     Route: 048
     Dates: start: 20090907, end: 20091110
  14. URSO 250 [Concomitant]
     Indication: LIVER DISORDER
     Route: 048
     Dates: start: 20091028, end: 20091117
  15. METHIONINE [Concomitant]
     Indication: LIVER DISORDER
     Route: 048
     Dates: start: 20091028, end: 20091117
  16. GLYCINE 1.5% [Concomitant]
     Indication: LIVER DISORDER
     Route: 048
     Dates: start: 20091028, end: 20091117
  17. LOXOPROFEN SODIUM [Concomitant]
     Indication: CANCER PAIN
     Route: 048
     Dates: start: 20091026, end: 20091129
  18. REBAMIPIDE [Concomitant]
     Indication: CANCER PAIN
     Route: 048
     Dates: start: 20091026, end: 20091129
  19. KLARICID [Concomitant]
     Indication: INFECTION
     Route: 048
     Dates: start: 20091028, end: 20091129
  20. RAMELTEON [Concomitant]
     Indication: NAUSEA
     Route: 048
     Dates: end: 20091129

REACTIONS (9)
  - ANAEMIA [None]
  - INFECTION [None]
  - LIVER DISORDER [None]
  - MALIGNANT NEOPLASM PROGRESSION [None]
  - NAUSEA [None]
  - NEUTROPHIL COUNT DECREASED [None]
  - PLATELET COUNT DECREASED [None]
  - PULMONARY OEDEMA [None]
  - WHITE BLOOD CELL COUNT DECREASED [None]
